FAERS Safety Report 10231525 (Version 1)
Quarter: 2014Q2

REPORT INFORMATION
  Report Type: Spontaneous
  Country: GB (occurrence: GB)
  Receive Date: 20140611
  Receipt Date: 20140611
  Transmission Date: 20141212
  Serious: Yes (Other)
  Sender: FDA-Public Use
  Company Number: PHHY2014GB069489

PATIENT
  Sex: 0

DRUGS (2)
  1. ALLOPURINOL [Suspect]
     Route: 064
  2. MERCAPTOPURINE [Suspect]

REACTIONS (2)
  - Premature baby [Unknown]
  - Foetal exposure during pregnancy [Unknown]
